FAERS Safety Report 9334235 (Version 1)
Quarter: 2013Q2

REPORT INFORMATION
  Report Type: Spontaneous
  Country: FR (occurrence: None)
  Receive Date: 20130604
  Receipt Date: 20130604
  Transmission Date: 20140414
  Serious: Yes (Other)
  Sender: FDA-Public Use
  Company Number: ADR-2013-00920

PATIENT
  Sex: Male

DRUGS (2)
  1. BACLOFEN INTRATHECAL (BACLOFEN) AMPOULE [Suspect]
     Indication: MUSCLE SPASTICITY
     Dosage: 96 MCG/DAY/INTRATHECAL
     Route: 037
     Dates: end: 20120423
  2. DYSPORT [Suspect]
     Dosage: 2 DF/QD INTRAMUSCULAR
     Route: 030
     Dates: start: 20120423, end: 20130423

REACTIONS (3)
  - Asthenia [None]
  - Dysstasia [None]
  - Hypotonia [None]
